FAERS Safety Report 20132620 (Version 3)
Quarter: 2022Q1

REPORT INFORMATION
  Report Type: Report from Study
  Country: PL (occurrence: PL)
  Receive Date: 20211130
  Receipt Date: 20220302
  Transmission Date: 20220423
  Serious: Yes (Life-Threatening, Hospitalization, Other)
  Sender: FDA-Public Use
  Company Number: PL-CELGENE-POL-20211107621

PATIENT
  Sex: Female
  Weight: 85 kg

DRUGS (6)
  1. OZANIMOD [Suspect]
     Active Substance: OZANIMOD
     Indication: Relapsing multiple sclerosis
     Dosage: 1 AS PER PROTOCOL
     Route: 048
     Dates: start: 20160520, end: 20211007
  2. OZANIMOD [Suspect]
     Active Substance: OZANIMOD
     Dosage: 1 AS PER PROTOCOL
     Route: 048
     Dates: start: 20211113
  3. BACLOFEN [Concomitant]
     Active Substance: BACLOFEN
     Indication: Muscle spasticity
     Dosage: 10 MILLIGRAM
     Route: 048
  4. DITROPAN [Concomitant]
     Active Substance: OXYBUTYNIN CHLORIDE
     Indication: Lower urinary tract symptoms
     Dosage: 5 MILLIGRAM
     Route: 048
  5. LOSARTAN POTASSIUM [Concomitant]
     Active Substance: LOSARTAN POTASSIUM
     Indication: Hypertension
     Dosage: 50+12.5 MILLIGRAM
     Route: 048
     Dates: start: 20170315
  6. MICROGYNON 21 [Concomitant]
     Indication: Contraception
     Dosage: 1 TABLET DOSING
     Route: 048
     Dates: start: 20171120

REACTIONS (1)
  - COVID-19 [Recovered/Resolved]

NARRATIVE: CASE EVENT DATE: 20211007
